FAERS Safety Report 18041147 (Version 1)
Quarter: 2020Q3

REPORT INFORMATION
  Report Type: Spontaneous
  Country: SE (occurrence: SE)
  Receive Date: 20200718
  Receipt Date: 20200718
  Transmission Date: 20201103
  Serious: Yes (Other)
  Sender: FDA-Public Use
  Company Number: NVSC2020SE199381

PATIENT
  Age: 54 Year
  Sex: Female
  Weight: 92 kg

DRUGS (2)
  1. DESLORATADINE SANDOZ [Suspect]
     Active Substance: DESLORATADINE
     Indication: HYPERSENSITIVITY
     Dosage: 5 MG, QD (VNR, 439962)
     Route: 065
     Dates: start: 20200525, end: 20200617
  2. BECLOMET [Concomitant]
     Indication: PRODUCT USED FOR UNKNOWN INDICATION
     Dosage: UNK
     Route: 065
     Dates: start: 20200424

REACTIONS (3)
  - Angina pectoris [Recovering/Resolving]
  - Dizziness postural [Recovering/Resolving]
  - Dizziness [Recovering/Resolving]

NARRATIVE: CASE EVENT DATE: 20200615
